FAERS Safety Report 9671752 (Version 2)
Quarter: 2013Q4

REPORT INFORMATION
  Report Type: Report from Study
  Country: US (occurrence: US)
  Receive Date: 20131106
  Receipt Date: 20131216
  Transmission Date: 20140711
  Serious: Yes (Hospitalization)
  Sender: FDA-Public Use
  Company Number: US-ACTELION-A-NJ2013-90828

PATIENT
  Age: 76 Year
  Sex: Female

DRUGS (1)
  1. VENTAVIS [Suspect]
     Indication: PULMONARY ARTERIAL HYPERTENSION
     Dosage: 2.5 MCG, 5X/DAY
     Route: 055
     Dates: start: 201306

REACTIONS (2)
  - Pericardial effusion [Unknown]
  - Drug dose omission [Unknown]
